FAERS Safety Report 16739817 (Version 6)
Quarter: 2022Q1

REPORT INFORMATION
  Report Type: Spontaneous
  Country: IT (occurrence: IT)
  Receive Date: 20190826
  Receipt Date: 20220129
  Transmission Date: 20220424
  Serious: Yes (Life-Threatening, Hospitalization, Other)
  Sender: FDA-Public Use
  Company Number: IT-DRREDDYS-USA/ITL/19/0110222

PATIENT
  Age: 65 Year
  Sex: Male

DRUGS (3)
  1. IMATINIB MESYLATE [Suspect]
     Active Substance: IMATINIB MESYLATE
     Indication: Gastrointestinal stromal tumour
     Route: 048
  2. PYRIDOSTIGMINE [Suspect]
     Active Substance: PYRIDOSTIGMINE
     Indication: Myasthenia gravis
  3. HUMAN PLASMA [Concomitant]
     Active Substance: HUMAN PLASMA
     Indication: Myasthenia gravis
     Dosage: FIVE SECTIONS OF PLASMA EXCHANGE

REACTIONS (12)
  - Eyelid ptosis [Recovered/Resolved]
  - Posture abnormal [Recovered/Resolved]
  - Myasthenia gravis [Recovering/Resolving]
  - Neuromyopathy [Recovered/Resolved]
  - Respiratory failure [Recovered/Resolved]
  - Dysphagia [Recovered/Resolved]
  - Myasthenic syndrome [Recovered/Resolved]
  - Dysphonia [Recovered/Resolved]
  - Atonic seizures [Recovered/Resolved]
  - Dropped head syndrome [Recovering/Resolving]
  - Drug ineffective [Unknown]
  - Masticatory pain [Recovered/Resolved]
